FAERS Safety Report 11414624 (Version 1)
Quarter: 2015Q3

REPORT INFORMATION
  Report Type: Spontaneous
  Country: US (occurrence: None)
  Receive Date: 20150821
  Receipt Date: 20150821
  Transmission Date: 20151125
  Serious: Yes (Hospitalization)
  Sender: FDA-Public Use
  Company Number: 15AE041

PATIENT
  Age: 5 Year
  Sex: Female

DRUGS (1)
  1. CHILDRENS WAL-DRYL ALLERGY [Suspect]
     Active Substance: DIPHENHYDRAMINE HYDROCHLORIDE

REACTIONS (4)
  - Lethargy [None]
  - Tachycardia [None]
  - Failure of child resistant mechanism for pharmaceutical product [None]
  - Accidental exposure to product by child [None]

NARRATIVE: CASE EVENT DATE: 20150805
